FAERS Safety Report 16462663 (Version 1)
Quarter: 2019Q2

REPORT INFORMATION
  Report Type: Spontaneous
  Country: DE (occurrence: DE)
  Receive Date: 20190621
  Receipt Date: 20190621
  Transmission Date: 20190711
  Serious: Yes (Other)
  Sender: FDA-Public Use
  Company Number: DE-AUROBINDO-AUR-APL-2019-034324

PATIENT

DRUGS (5)
  1. OLANZAPIN 1A PHARMA [Suspect]
     Active Substance: OLANZAPINE
     Indication: DEPRESSION
     Dosage: 2.5 MILLIGRAM, DAILY
     Route: 065
  2. OLANZAPINE. [Suspect]
     Active Substance: OLANZAPINE
     Indication: PRODUCT USED FOR UNKNOWN INDICATION
     Dosage: UNK
     Route: 065
     Dates: start: 2009
  3. ZYPREXA [Suspect]
     Active Substance: OLANZAPINE
     Indication: PRODUCT USED FOR UNKNOWN INDICATION
     Dosage: UNK
     Route: 065
     Dates: start: 2007, end: 2009
  4. IODINE. [Concomitant]
     Active Substance: IODINE
     Indication: PRODUCT USED FOR UNKNOWN INDICATION
     Dosage: UNK
     Route: 065
     Dates: start: 201510
  5. OLANZAPIN 1A PHARMA [Suspect]
     Active Substance: OLANZAPINE
     Indication: OBSESSIVE-COMPULSIVE DISORDER
     Dosage: UNK
     Route: 065

REACTIONS (7)
  - Inflammation [Unknown]
  - Restlessness [Unknown]
  - Dizziness [Unknown]
  - Diabetes mellitus [Unknown]
  - Acne [Unknown]
  - Weight increased [Unknown]
  - Drug ineffective for unapproved indication [Not Recovered/Not Resolved]
